FAERS Safety Report 19231863 (Version 2)
Quarter: 2021Q2

REPORT INFORMATION
  Report Type: Spontaneous
  Country: HR (occurrence: HR)
  Receive Date: 20210507
  Receipt Date: 20210512
  Transmission Date: 20210717
  Serious: Yes (Death, Life-Threatening, Hospitalization, Other)
  Sender: FDA-Public Use
  Company Number: HR-TAKEDA-2021TUS028927

PATIENT
  Age: 56 Year
  Sex: Male

DRUGS (2)
  1. ICLUSIG [Suspect]
     Active Substance: PONATINIB
     Indication: CHRONIC MYELOID LEUKAEMIA
     Dosage: 45 MILLIGRAM
     Route: 065
  2. ICLUSIG [Suspect]
     Active Substance: PONATINIB
     Dosage: 15 MILLIGRAM
     Route: 065

REACTIONS (6)
  - Cardiac failure [Fatal]
  - Back pain [Recovered/Resolved]
  - Disease progression [Unknown]
  - Chronic myeloid leukaemia [Unknown]
  - Viral infection [Unknown]
  - Abdominal pain [Recovered/Resolved]
